FAERS Safety Report 9006496 (Version 1)
Quarter: 2012Q4

REPORT INFORMATION
  Report Type: Spontaneous
  Country: DE (occurrence: None)
  Receive Date: 20121227
  Receipt Date: 20121227
  Transmission Date: 20130627
  Serious: Yes (Death)
  Sender: FDA-Public Use
  Company Number: 2009EU004352

PATIENT
  Age: 51 Year
  Sex: Male

DRUGS (9)
  1. TACROLIMUS [Suspect]
     Dosage: 4 mg, UID/QD, Oral
     Route: 048
     Dates: start: 20090411, end: 20091022
  2. CELLCEPT (MYCOPHENOLATE MOFETIL) TABLET [Suspect]
     Indication: RENAL TRANSPLANT
     Route: 048
     Dates: start: 20090411, end: 20091022
  3. DECORTIN [Suspect]
     Indication: RENAL TRANSPLANT
     Dosage: 5 mg, UID/QD, Oral
     Route: 048
     Dates: start: 20090411, end: 20091002
  4. METOPROLOL [Concomitant]
  5. DIGITOXIN [Concomitant]
  6. TORASEMIDE [Concomitant]
  7. FLUVASTATIN [Concomitant]
  8. PANTOPRAZOL (PANTOPRAZOLE SODIUM) [Concomitant]
  9. COUMADINE (WARFARIN SODIUM) [Concomitant]

REACTIONS (3)
  - Sudden cardiac death [None]
  - Dilatation ventricular [None]
  - Arrhythmia [None]
